APPROVED DRUG PRODUCT: BUTABARBITAL SODIUM
Active Ingredient: BUTABARBITAL SODIUM
Strength: 30MG
Dosage Form/Route: TABLET;ORAL
Application: A088631 | Product #001
Applicant: TEVA PHARMACEUTICALS USA INC
Approved: May 1, 1985 | RLD: No | RS: No | Type: DISCN